FAERS Safety Report 5366740-5 (Version None)
Quarter: 2007Q2

REPORT INFORMATION
  Report Type: 
  Country: None (occurrence: None)
  Receive Date: 20070622
  Receipt Date: 20060620
  Transmission Date: 20071010
  Serious: No
  Sender: FDA-Public Use
  Company Number: US-ASTRAZENECA-2006UW13085

PATIENT
  Age: 41 Year
  Sex: Female
  Weight: 54.4 kg

DRUGS (3)
  1. RHINOCORT [Suspect]
     Indication: SINUSITIS
     Route: 045
  2. RHINOCORT [Suspect]
     Indication: MULTIPLE ALLERGIES
     Route: 045
  3. BENADRYL [Concomitant]
     Route: 048

REACTIONS (2)
  - DYSGEUSIA [None]
  - GLOSSODYNIA [None]
